FAERS Safety Report 7389319-2 (Version None)
Quarter: 2011Q2

REPORT INFORMATION
  Report Type: 
  Country: None (occurrence: None)
  Receive Date: 20110401
  Receipt Date: 20101130
  Transmission Date: 20111010
  Serious: Yes (Hospitalization)
  Sender: FDA-Public Use
  Company Number: A0898302A

PATIENT
  Age: 73 Year
  Sex: Male

DRUGS (1)
  1. AVANDIA [Suspect]
     Indication: DIABETES MELLITUS
     Route: 048
     Dates: start: 20020426, end: 20030115

REACTIONS (5)
  - CORONARY ARTERY DISEASE [None]
  - ARTHRALGIA [None]
  - CATHETERISATION CARDIAC [None]
  - MUSCLE SPASMS [None]
  - FATIGUE [None]
